FAERS Safety Report 18900664 (Version 2)
Quarter: 2021Q1

REPORT INFORMATION
  Report Type: Spontaneous
  Country: US (occurrence: US)
  Receive Date: 20210216
  Receipt Date: 20210326
  Transmission Date: 20210420
  Serious: Yes (Other)
  Sender: FDA-Public Use
  Company Number: US-ELITE LABORATORIES INC.-2021ELT00007

PATIENT
  Age: 30 Year
  Sex: Female

DRUGS (2)
  1. DEXTROAMPHET SACCHARAT, AMPHET ASPARTATE, DEXTROAMPHET SULFATE AND AMPHET SULFAT [Suspect]
     Active Substance: AMPHETAMINE ASPARTATE\AMPHETAMINE SULFATE\DEXTROAMPHETAMINE SACCHARATE\DEXTROAMPHETAMINE SULFATE
     Indication: NARCOLEPSY
     Dosage: 20 MG, 1X/DAY IN THE AFTERNOON
     Route: 048
     Dates: start: 2011
  2. DEXTROAMPHET SACCHARAT, AMPHET ASPARTATE, DEXTROAMPHET SULFATE AND AMPHET SULFAT [Suspect]
     Active Substance: AMPHETAMINE ASPARTATE\AMPHETAMINE SULFATE\DEXTROAMPHETAMINE SACCHARATE\DEXTROAMPHETAMINE SULFATE
     Dosage: 20?30 MG, 1X/DAY IN THE MORNING
     Route: 048
     Dates: start: 2011

REACTIONS (9)
  - Unevaluable event [Unknown]
  - Therapeutic product effect decreased [Unknown]
  - Sleep apnoea syndrome [Not Recovered/Not Resolved]
  - Emotional disorder [Unknown]
  - Off label use [Unknown]
  - Drug ineffective [Unknown]
  - Narcolepsy [Not Recovered/Not Resolved]
  - Feeling abnormal [Not Recovered/Not Resolved]
  - Gene mutation identification test positive [Not Recovered/Not Resolved]

NARRATIVE: CASE EVENT DATE: 2011
